FAERS Safety Report 23262766 (Version 4)
Quarter: 2024Q2

REPORT INFORMATION
  Report Type: Spontaneous
  Country: US (occurrence: US)
  Receive Date: 20231205
  Receipt Date: 20240506
  Transmission Date: 20240716
  Serious: No
  Sender: FDA-Public Use
  Company Number: US-BIOGEN-2023BI01238514

PATIENT
  Sex: Female

DRUGS (4)
  1. VUMERITY [Suspect]
     Active Substance: DIROXIMEL FUMARATE
     Indication: Multiple sclerosis
     Route: 050
     Dates: start: 20230323
  2. VUMERITY [Suspect]
     Active Substance: DIROXIMEL FUMARATE
     Dosage: DOSE REDUCED
     Route: 050
     Dates: start: 20230404, end: 202311
  3. LIPITOR [Concomitant]
     Active Substance: ATORVASTATIN CALCIUM
     Route: 050
  4. DRONABINOL [Concomitant]
     Active Substance: DRONABINOL
     Route: 050

REACTIONS (7)
  - Treatment failure [Unknown]
  - Genital herpes [Unknown]
  - Onychomycosis [Unknown]
  - Skin papilloma [Unknown]
  - Viral infection [Unknown]
  - Decreased immune responsiveness [Unknown]
  - Alopecia [Unknown]

NARRATIVE: CASE EVENT DATE: 20230101
